FAERS Safety Report 7773090-6 (Version None)
Quarter: 2011Q3

REPORT INFORMATION
  Report Type: 
  Country: None (occurrence: None)
  Receive Date: 20110922
  Receipt Date: 20110328
  Transmission Date: 20111222
  Serious: No
  Sender: FDA-Public Use
  Company Number: US-ASTRAZENECA-2011SE17425

PATIENT
  Age: 43 Year
  Sex: Female

DRUGS (5)
  1. SEROQUEL [Suspect]
     Route: 048
     Dates: start: 20090427
  2. PROMETHAZINE [Concomitant]
     Dates: start: 20090411
  3. GLIPIZIDE [Concomitant]
     Route: 048
     Dates: start: 20091202
  4. DIAZEPAM [Concomitant]
     Dates: start: 20090427
  5. OXYCODONE HCL AND ACETAMINOPHEN [Concomitant]
     Dosage: 5 MG - 325 MG
     Dates: start: 20090426

REACTIONS (2)
  - DIABETES MELLITUS [None]
  - DIABETIC EYE DISEASE [None]
